FAERS Safety Report 24192717 (Version 3)
Quarter: 2024Q3

REPORT INFORMATION
  Report Type: Report from Study
  Country: US (occurrence: US)
  Receive Date: 20240809
  Receipt Date: 20240819
  Transmission Date: 20241016
  Serious: Yes (Hospitalization, Other)
  Sender: JOHNSON AND JOHNSON
  Company Number: US-JNJFOC-20240722108

PATIENT
  Age: 47 Year
  Sex: Female

DRUGS (10)
  1. SELEXIPAG [Suspect]
     Active Substance: SELEXIPAG
     Indication: Pulmonary arterial hypertension
     Dosage: TAKE BY MOUTH 2 TIMES A DAY AND INCREASE BY 200MCG 2 TIMES A DAY EVERY 2 WEEKS AS DIRECTED TO THE HI
     Route: 048
     Dates: start: 202401
  2. SELEXIPAG [Suspect]
     Active Substance: SELEXIPAG
     Route: 048
     Dates: start: 202401
  3. SELEXIPAG [Suspect]
     Active Substance: SELEXIPAG
     Route: 048
     Dates: start: 202401
  4. SELEXIPAG [Suspect]
     Active Substance: SELEXIPAG
     Route: 048
     Dates: start: 202401
  5. EPOPROSTENOL SODIUM [Suspect]
     Active Substance: EPOPROSTENOL SODIUM
     Indication: Pulmonary arterial hypertension
     Route: 042
  6. EPOPROSTENOL SODIUM [Suspect]
     Active Substance: EPOPROSTENOL SODIUM
     Route: 042
     Dates: start: 202407
  7. EPOPROSTENOL SODIUM [Suspect]
     Active Substance: EPOPROSTENOL SODIUM
     Route: 042
     Dates: start: 202407
  8. EPOPROSTENOL SODIUM [Suspect]
     Active Substance: EPOPROSTENOL SODIUM
     Route: 042
     Dates: start: 202401
  9. OPSUMIT [Concomitant]
     Active Substance: MACITENTAN
  10. ADEMPAS [Concomitant]
     Active Substance: RIOCIGUAT

REACTIONS (15)
  - Ascites [Unknown]
  - Oxygen saturation decreased [Unknown]
  - Hospitalisation [Unknown]
  - General physical health deterioration [Unknown]
  - Dyspnoea exertional [Not Recovered/Not Resolved]
  - Headache [Unknown]
  - Nausea [Unknown]
  - Lethargy [Unknown]
  - Pain in jaw [Unknown]
  - Heart rate irregular [Unknown]
  - Oedema [Unknown]
  - Device delivery system issue [Unknown]
  - Wheezing [Unknown]
  - Weight increased [Unknown]
  - Swelling [Unknown]
